FAERS Safety Report 22280691 (Version 1)
Quarter: 2023Q2

REPORT INFORMATION
  Report Type: Spontaneous
  Country: US (occurrence: None)
  Receive Date: 20230502
  Receipt Date: 20230502
  Transmission Date: 20230721
  Serious: Yes (Other)
  Sender: FDA-Public Use
  Company Number: None

PATIENT
  Age: 27 Year
  Sex: Female
  Weight: 51.75 kg

DRUGS (7)
  1. AZSTARYS [Suspect]
     Active Substance: DEXMETHYLPHENIDATE HYDROCHLORIDE\SERDEXMETHYLPHENIDATE CHLORIDE
     Indication: Attention deficit hyperactivity disorder
     Dosage: OTHER QUANTITY : 30 CAPSULE(S);?FREQUENCY : DAILY;?
     Route: 048
     Dates: start: 20230423, end: 20230502
  2. Focalin Generic IR [Concomitant]
  3. Xulane BC Patch [Concomitant]
  4. Vignatex Capsule [Concomitant]
  5. Oleamide Capsule [Concomitant]
  6. GABA Capsules [Concomitant]
  7. IRON [Concomitant]
     Active Substance: IRON

REACTIONS (5)
  - Nausea [None]
  - Nausea [None]
  - Abdominal pain upper [None]
  - Vomiting [None]
  - Dysgeusia [None]

NARRATIVE: CASE EVENT DATE: 20230423
